FAERS Safety Report 26217341 (Version 1)
Quarter: 2025Q4

REPORT INFORMATION
  Report Type: Spontaneous
  Country: US (occurrence: US)
  Receive Date: 20251231
  Receipt Date: 20251231
  Transmission Date: 20260119
  Serious: Yes (Death, Other)
  Sender: TEVA
  Company Number: US-TEVA-VS-3406652

PATIENT
  Age: 29 Year
  Sex: Male

DRUGS (3)
  1. PROPRANOLOL [Suspect]
     Active Substance: PROPRANOLOL HYDROCHLORIDE
     Indication: Anxiety
     Route: 065
     Dates: start: 20251129, end: 20251207
  2. TRAZODONE [Suspect]
     Active Substance: TRAZODONE HYDROCHLORIDE
     Indication: Anxiety
     Route: 065
     Dates: start: 20251129, end: 20251207
  3. DIAZEPAM [Suspect]
     Active Substance: DIAZEPAM
     Indication: Anxiety
     Route: 065
     Dates: start: 20251129, end: 20251207

REACTIONS (16)
  - Death [Fatal]
  - Malaise [Unknown]
  - Disturbance in attention [Unknown]
  - Bradycardia [Unknown]
  - Fatigue [Unknown]
  - Dizziness [Unknown]
  - Nausea [Unknown]
  - Poor quality sleep [Unknown]
  - Affect lability [Unknown]
  - Bedridden [Unknown]
  - Fluid intake reduced [Unknown]
  - Loss of personal independence in daily activities [Unknown]
  - Drug metabolite level high [Unknown]
  - Dehydration [Unknown]
  - Hypoperfusion [Unknown]
  - Urinary retention [Unknown]

NARRATIVE: CASE EVENT DATE: 20250101
